FAERS Safety Report 8267003-0 (Version None)
Quarter: 2012Q2

REPORT INFORMATION
  Report Type: 
  Country: None (occurrence: None)
  Receive Date: 20120409
  Receipt Date: 20120403
  Transmission Date: 20120825
  Serious: No
  Sender: FDA-Public Use
  Company Number: US-PFIZER INC-2012085114

PATIENT
  Sex: Male

DRUGS (5)
  1. CITALOPRAM HYDROBROMIDE [Suspect]
     Indication: MAJOR DEPRESSION
     Dosage: UNK
  2. VENLAFAXINE HCL [Suspect]
     Indication: MAJOR DEPRESSION
     Dosage: UNK
  3. XANAX [Concomitant]
     Dosage: 1 MG,  3X/DAY AS NEEDED
  4. CITALOPRAM HYDROBROMIDE [Suspect]
     Indication: SOCIAL PHOBIA
  5. VENLAFAXINE HCL [Suspect]
     Indication: SOCIAL PHOBIA

REACTIONS (1)
  - DRUG EFFECT DECREASED [None]
